FAERS Safety Report 22229007 (Version 1)
Quarter: 2023Q2

REPORT INFORMATION
  Report Type: Spontaneous
  Country: US (occurrence: None)
  Receive Date: 20230418
  Receipt Date: 20230418
  Transmission Date: 20230721
  Serious: Yes (Death)
  Sender: FDA-Public Use
  Company Number: None

PATIENT
  Age: 82 Year
  Sex: Male
  Weight: 74.8 kg

DRUGS (17)
  1. CAPECITABINE [Suspect]
     Active Substance: CAPECITABINE
     Indication: Colon cancer
     Dosage: 2000MG TWICE DAILY ORAL
     Route: 048
  2. COLACE [Concomitant]
     Active Substance: DOCUSATE SODIUM
  3. GLYCOLAX [Concomitant]
     Active Substance: POLYETHYLENE GLYCOL 3350
  4. IRON [Concomitant]
     Active Substance: IRON
  5. IRON [Concomitant]
     Active Substance: IRON
  6. JANUVIA [Concomitant]
     Active Substance: SITAGLIPTIN PHOSPHATE
  7. KEFLEX [Concomitant]
     Active Substance: CEPHALEXIN
  8. LEVAQUIN [Concomitant]
     Active Substance: LEVOFLOXACIN
  9. LIPITOR [Concomitant]
     Active Substance: ATORVASTATIN CALCIUM
  10. VITAMINS [Concomitant]
     Active Substance: VITAMINS
  11. NORVASC [Concomitant]
     Active Substance: AMLODIPINE BESYLATE
  12. PLAVIX [Concomitant]
     Active Substance: CLOPIDOGREL BISULFATE
  13. REPAGLINIDE-METFORMIN [Concomitant]
  14. ASPIRIN [Concomitant]
     Active Substance: ASPIRIN
  15. TOPROL XL [Concomitant]
     Active Substance: METOPROLOL SUCCINATE
  16. TYLENOL [Concomitant]
     Active Substance: ACETAMINOPHEN
  17. ZYRTEC [Concomitant]
     Active Substance: CETIRIZINE HYDROCHLORIDE

REACTIONS (1)
  - Death [None]
